FAERS Safety Report 12670562 (Version 2)
Quarter: 2016Q3

REPORT INFORMATION
  Report Type: Spontaneous
  Country: CN (occurrence: CN)
  Receive Date: 20160822
  Receipt Date: 20160902
  Transmission Date: 20161109
  Serious: Yes (Life-Threatening, Hospitalization)
  Sender: FDA-Public Use
  Company Number: CN-GLENMARK PHARMACEUTICALS INC, USA.-2016GMK023993

PATIENT

DRUGS (3)
  1. DESMOPRESSIN ACETATE. [Suspect]
     Active Substance: DESMOPRESSIN ACETATE
     Indication: HAEMORRHAGE PROPHYLAXIS
     Dosage: 16 ?G, IN 500 ML OF NORMAL SALINE AT 150 ML/H QD
     Route: 042
     Dates: start: 20090727
  2. DESMOPRESSIN ACETATE. [Suspect]
     Active Substance: DESMOPRESSIN ACETATE
     Dosage: 0.4 ?G/HR
     Route: 042
  3. TONIC DRINKS [Concomitant]
     Indication: PRODUCT USED FOR UNKNOWN INDICATION
     Dosage: 4500 ML, UNK
     Route: 065

REACTIONS (6)
  - Drug withdrawal syndrome [Recovered/Resolved]
  - Encephalopathy [Recovered/Resolved]
  - Product use issue [Unknown]
  - Diabetes insipidus [Recovered/Resolved]
  - Hyponatraemia [Recovering/Resolving]
  - Hypovolaemic shock [Recovering/Resolving]
